FAERS Safety Report 20193500 (Version 3)
Quarter: 2021Q4

REPORT INFORMATION
  Report Type: Spontaneous
  Country: BR (occurrence: BR)
  Receive Date: 20211216
  Receipt Date: 20211229
  Transmission Date: 20220303
  Serious: Yes (Hospitalization)
  Sender: FDA-Public Use
  Company Number: BR-BoehringerIngelheim-2021-BI-142504

PATIENT
  Age: 57 Year
  Sex: Male
  Weight: 95 kg

DRUGS (16)
  1. JARDIANCE [Suspect]
     Active Substance: EMPAGLIFLOZIN
     Indication: Type 2 diabetes mellitus
     Route: 048
     Dates: start: 2017, end: 20190511
  2. JARDIANCE [Suspect]
     Active Substance: EMPAGLIFLOZIN
     Route: 048
     Dates: start: 20190526, end: 201907
  3. JARDIANCE [Suspect]
     Active Substance: EMPAGLIFLOZIN
     Route: 048
     Dates: start: 201907, end: 20191024
  4. JARDIANCE [Suspect]
     Active Substance: EMPAGLIFLOZIN
     Route: 048
     Dates: start: 20191113
  5. SIMVASTATIN [Suspect]
     Active Substance: SIMVASTATIN
     Indication: Blood cholesterol abnormal
     Dates: end: 2017
  6. MALEATO DE ENALAPRIL [Concomitant]
     Indication: Hypertension
     Route: 048
     Dates: start: 2008
  7. METOPROLOL SUCCINATE [Concomitant]
     Active Substance: METOPROLOL SUCCINATE
     Indication: Angina pectoris
     Route: 048
     Dates: start: 2017
  8. AMLODIPINE BESYLATE [Concomitant]
     Active Substance: AMLODIPINE BESYLATE
     Indication: Hypertension
     Dosage: IN THE MORNING
     Route: 048
     Dates: start: 2008
  9. ASPIRIN [Concomitant]
     Active Substance: ASPIRIN
     Indication: Hypertension
     Dosage: AFTER LUNCH
     Route: 048
     Dates: start: 2008
  10. ASPIRIN [Concomitant]
     Active Substance: ASPIRIN
     Indication: Blood viscosity decreased
  11. ROSUVASTATIN CALCIUM [Concomitant]
     Active Substance: ROSUVASTATIN CALCIUM
     Indication: Blood cholesterol abnormal
     Dosage: AT NIGHT
     Route: 048
     Dates: start: 2017
  12. DAINITRE [Concomitant]
     Indication: Angina pectoris
     Route: 048
     Dates: start: 2017
  13. VASTAREL [Concomitant]
     Active Substance: TRIMETAZIDINE DIHYDROCHLORIDE
     Indication: Arrhythmia
     Route: 048
     Dates: start: 2017
  14. METOPROLOL SUCCINATE [Concomitant]
     Active Substance: METOPROLOL SUCCINATE
     Indication: Product used for unknown indication
  15. ROSUVASTATIN [Concomitant]
     Active Substance: ROSUVASTATIN
     Indication: Product used for unknown indication
  16. MONOCORDIL [Concomitant]
     Active Substance: ISOSORBIDE MONONITRATE
     Indication: Angina pectoris
     Dates: end: 2017

REACTIONS (3)
  - Nephrolithiasis [Recovered/Resolved]
  - Therapeutic response unexpected [Unknown]
  - Myalgia [Unknown]

NARRATIVE: CASE EVENT DATE: 20180701
